FAERS Safety Report 15387545 (Version 1)
Quarter: 2018Q3

REPORT INFORMATION
  Report Type: Spontaneous
  Country: US (occurrence: US)
  Receive Date: 20180914
  Receipt Date: 20180914
  Transmission Date: 20181010
  Serious: No
  Sender: FDA-Public Use
  Company Number: US-PURDUE-USA-2018-0144429

PATIENT
  Age: 56 Year
  Sex: Male

DRUGS (1)
  1. OXYCODONE/ ACETAMINOPHEN TABLETS [Suspect]
     Active Substance: ACETAMINOPHEN\OXYCODONE HYDROCHLORIDE
     Indication: PAIN
     Dosage: 10/325 MG TABLET, PRN
     Route: 048
     Dates: start: 20180807

REACTIONS (3)
  - Drug ineffective [Unknown]
  - Palpitations [Unknown]
  - Hyperhidrosis [Unknown]

NARRATIVE: CASE EVENT DATE: 20180807
